FAERS Safety Report 6762453-3 (Version None)
Quarter: 2010Q2

REPORT INFORMATION
  Report Type: 
  Country: None (occurrence: None)
  Receive Date: 20100609
  Receipt Date: 20100527
  Transmission Date: 20101027
  Serious: Yes (Hospitalization, Other)
  Sender: FDA-Public Use
  Company Number: US-ELI_LILLY_AND_COMPANY-US201006000807

PATIENT
  Age: 84 Year
  Sex: Male

DRUGS (7)
  1. CYMBALTA [Suspect]
     Indication: MAJOR DEPRESSION
     Dosage: 30 MG, DAILY (1/D)
     Route: 065
     Dates: start: 20100325
  2. ATIVAN [Concomitant]
     Indication: ANXIETY
     Dosage: 0.25 MG, DAILY (1/D)
     Route: 065
  3. ATIVAN [Concomitant]
     Dosage: 1 D/F, 2/D
     Route: 065
  4. NEURONTIN [Concomitant]
     Indication: DIABETIC NEUROPATHY
     Dosage: 200 MG, 3/D
     Route: 065
     Dates: start: 20100225
  5. VICODIN [Concomitant]
     Indication: ANXIETY
     Dosage: 500 MG, UNKNOWN
     Route: 065
  6. CETIRIZINE HCL [Concomitant]
     Dosage: 2 D/F, 2/D
     Route: 065
  7. CETIRIZINE HCL [Concomitant]
     Dosage: 2 D/F, AS NEEDED
     Route: 065

REACTIONS (2)
  - HYPONATRAEMIA [None]
  - HYPOXIA [None]
